FAERS Safety Report 6595940-1 (Version None)
Quarter: 2010Q1

REPORT INFORMATION
  Report Type: 
  Country: None (occurrence: None)
  Receive Date: 20100223
  Receipt Date: 20100217
  Transmission Date: 20100710
  Serious: Yes (Other)
  Sender: FDA-Public Use
  Company Number: US-ALLERGAN-1000699US

PATIENT
  Age: 80 Year
  Sex: Male

DRUGS (6)
  1. ACUVAIL [Suspect]
     Indication: RETINAL VEIN OCCLUSION
     Dosage: 1 GTT, BID
     Route: 047
     Dates: start: 20091119, end: 20091218
  2. ACUVAIL [Suspect]
     Indication: MACULAR OEDEMA
  3. PRILOSEC [Concomitant]
  4. LEVOTROIT [Concomitant]
  5. LISINOPRIL [Concomitant]
  6. VICODIN [Concomitant]

REACTIONS (1)
  - ULCERATIVE KERATITIS [None]
